FAERS Safety Report 5012507-7 (Version None)
Quarter: 2006Q2

REPORT INFORMATION
  Report Type: 
  Country: None (occurrence: None)
  Receive Date: 20060411
  Receipt Date: 20060126
  Transmission Date: 20061013
  Serious: No
  Sender: FDA-Public Use
  Company Number: 2006S1000023

PATIENT
  Age: 38 Year
  Sex: Female

DRUGS (3)
  1. CUBICIN [Suspect]
     Indication: EXTRADURAL ABSCESS
     Dosage: 500MG;Q24H; IV
     Route: 042
     Dates: start: 20060124, end: 20060125
  2. VANCOMYCIN [Concomitant]
  3. LEVOFLOXACIN [Concomitant]

REACTIONS (1)
  - OEDEMA PERIPHERAL [None]
